FAERS Safety Report 4303594-X (Version None)
Quarter: 2004Q1

REPORT INFORMATION
  Report Type: 
  Country: None (occurrence: None)
  Receive Date: 20040223
  Receipt Date: 20040216
  Transmission Date: 20041129
  Serious: No
  Sender: FDA-Public Use
  Company Number: 04-00016

PATIENT
  Age: 74 Year
  Sex: Female

DRUGS (7)
  1. SERAX [Suspect]
     Indication: ANXIETY
     Dosage: 15 MG, ONCE DAILY AT BEDTIME, ORAL
     Route: 048
  2. SERAX [Suspect]
     Indication: SLEEP DISORDER
     Dosage: 15 MG, ONCE DAILY AT BEDTIME, ORAL
     Route: 048
  3. ZOCOR [Concomitant]
  4. INDERAL [Concomitant]
  5. IBUPROFEN [Concomitant]
  6. MICARDIS [Concomitant]
  7. OGEN [Concomitant]

REACTIONS (2)
  - CATARACT [None]
  - VISION BLURRED [None]
